FAERS Safety Report 8446300-X (Version None)
Quarter: 2012Q2

REPORT INFORMATION
  Report Type: 
  Country: None (occurrence: None)
  Receive Date: 20120618
  Receipt Date: 20120612
  Transmission Date: 20120825
  Serious: No
  Sender: FDA-Public Use
  Company Number: US-BAYER-2012-059105

PATIENT

DRUGS (5)
  1. EXCEDRIN (MIGRAINE) [Concomitant]
  2. DOLOSTOP [Concomitant]
  3. ACETAMINOPHEN [Concomitant]
  4. MOTRIN [Concomitant]
  5. ALEVE (CAPLET) [Suspect]
     Indication: HEADACHE
     Route: 048

REACTIONS (1)
  - MIGRAINE [None]
